FAERS Safety Report 9183910 (Version 1)
Quarter: 2013Q1

REPORT INFORMATION
  Report Type: Report from Study
  Country: IT (occurrence: IT)
  Receive Date: 20130322
  Receipt Date: 20130322
  Transmission Date: 20140127
  Serious: Yes (Hospitalization)
  Sender: FDA-Public Use
  Company Number: IT-TEVA-388749USA

PATIENT
  Age: 65 Year
  Sex: Female
  Weight: 53 kg

DRUGS (9)
  1. TREANDA [Suspect]
     Indication: HODGKIN^S DISEASE
     Dates: start: 20130128
  2. GEMCITABINE [Suspect]
     Indication: HODGKIN^S DISEASE
     Dates: start: 20130128
  3. VINORELBINE [Suspect]
     Indication: HODGKIN^S DISEASE
     Dates: start: 20130128
  4. RAMIPRIL [Concomitant]
     Indication: ANTACID THERAPY
     Dosage: 30 MILLIGRAM DAILY;
     Route: 048
     Dates: start: 20130107
  5. LANSOPRAZOLE [Concomitant]
     Indication: ANTACID THERAPY
     Dosage: 15 MILLIGRAM DAILY;
     Route: 048
     Dates: start: 20130107, end: 20130210
  6. ATORVASTATINE [Concomitant]
     Indication: DYSLIPIDAEMIA
     Dosage: 20 MILLIGRAM DAILY;
     Route: 048
     Dates: start: 2011
  7. BISOPROLOL [Concomitant]
     Indication: MYOCARDIAL INFARCTION
     Dosage: 10 MILLIGRAM DAILY;
     Route: 048
     Dates: start: 2011
  8. ONDANSETRON [Concomitant]
     Indication: ANTIEMETIC SUPPORTIVE CARE
     Dosage: 8 MILLIGRAM DAILY;
     Route: 048
     Dates: start: 20130107
  9. NEORECORMON [Concomitant]
     Indication: BLOOD GROWTH HORMONE
     Dosage: 1 FL
     Dates: start: 20130131

REACTIONS (2)
  - Anaemia [Recovered/Resolved]
  - Pneumonitis [Recovered/Resolved]
